FAERS Safety Report 23299625 (Version 1)
Quarter: 2023Q4

REPORT INFORMATION
  Report Type: Spontaneous
  Country: NO (occurrence: NO)
  Receive Date: 20231215
  Receipt Date: 20231215
  Transmission Date: 20240110
  Serious: Yes (Other)
  Sender: FDA-Public Use
  Company Number: None

PATIENT
  Age: 78 Year
  Weight: 66 kg

DRUGS (2)
  1. PENICILLIN V POTASSIUM [Suspect]
     Active Substance: PENICILLIN V POTASSIUM
     Indication: Oral infection
     Route: 048
     Dates: start: 20231030, end: 202311
  2. Zooca Calanus Oil [Concomitant]
     Indication: Product used for unknown indication
     Route: 065

REACTIONS (5)
  - Colitis [Recovering/Resolving]
  - Pyrexia [Recovered/Resolved]
  - C-reactive protein increased [Unknown]
  - Malaise [Unknown]
  - Abdominal pain [Unknown]

NARRATIVE: CASE EVENT DATE: 20231103
